FAERS Safety Report 4569414-3 (Version None)
Quarter: 2005Q1

REPORT INFORMATION
  Report Type: 
  Country: None (occurrence: None)
  Receive Date: 20050203
  Receipt Date: 20050124
  Transmission Date: 20050727
  Serious: Yes (Other)
  Sender: FDA-Public Use
  Company Number: DE-JNJFOC-20050106332

PATIENT
  Sex: Male

DRUGS (1)
  1. SEMPERA [Suspect]
     Indication: FUNGAL INFECTION
     Route: 049

REACTIONS (1)
  - PANCREATITIS [None]
